FAERS Safety Report 15333199 (Version 1)
Quarter: 2018Q3

REPORT INFORMATION
  Report Type: Report from Study
  Country: CN (occurrence: CN)
  Receive Date: 20180830
  Receipt Date: 20180830
  Transmission Date: 20181010
  Serious: Yes (Hospitalization)
  Sender: FDA-Public Use
  Company Number: CN-ELI_LILLY_AND_COMPANY-CN201808013004

PATIENT
  Age: 75 Year
  Sex: Male
  Weight: 75 kg

DRUGS (2)
  1. INSULIN, LISPRO [Suspect]
     Active Substance: INSULIN LISPRO
     Indication: TYPE 2 DIABETES MELLITUS
     Dosage: 10 IU, EACH MORNING
     Route: 058
     Dates: start: 20180715
  2. INSULIN, LISPRO [Suspect]
     Active Substance: INSULIN LISPRO
     Dosage: 9 IU, DAILY
     Route: 058
     Dates: start: 20180715

REACTIONS (3)
  - Peripheral swelling [Recovering/Resolving]
  - Infection [Recovering/Resolving]
  - Diabetes mellitus inadequate control [Recovering/Resolving]
